FAERS Safety Report 7733807-3 (Version None)
Quarter: 2011Q3

REPORT INFORMATION
  Report Type: 
  Country: None (occurrence: None)
  Receive Date: 20110907
  Receipt Date: 20110831
  Transmission Date: 20111222
  Serious: Yes (Death, Hospitalization, Other)
  Sender: FDA-Public Use
  Company Number: PHHY2011JP61814

PATIENT
  Age: 67 Year
  Sex: Male

DRUGS (4)
  1. CYCLOSPORINE [Suspect]
     Indication: APLASIA PURE RED CELL
     Dosage: 300 MG,
     Dates: start: 20050201
  2. CYCLOSPORINE [Suspect]
     Dosage: 300 MG,
     Dates: start: 20100204, end: 20100201
  3. CYCLOSPORINE [Suspect]
     Dosage: 150 MG,
  4. CYCLOSPORINE [Suspect]
     Dosage: 200 MG,
     Dates: start: 20100101

REACTIONS (16)
  - BLOOD ALKALINE PHOSPHATASE INCREASED [None]
  - PANCYTOPENIA [None]
  - STOMATITIS [None]
  - ANAEMIA [None]
  - HISTIOCYTOSIS HAEMATOPHAGIC [None]
  - HEADACHE [None]
  - PYREXIA [None]
  - GINGIVAL SWELLING [None]
  - HEPATOSPLENOMEGALY [None]
  - EPSTEIN-BARR VIRUS INFECTION [None]
  - SERUM FERRITIN INCREASED [None]
  - CEREBRAL HAEMORRHAGE [None]
  - PERIPHERAL T-CELL LYMPHOMA UNSPECIFIED [None]
  - LYMPHADENOPATHY [None]
  - NAUSEA [None]
  - CHEST DISCOMFORT [None]
